FAERS Safety Report 12953548 (Version 2)
Quarter: 2017Q1

REPORT INFORMATION
  Report Type: Spontaneous
  Country: US (occurrence: US)
  Receive Date: 20161118
  Receipt Date: 20170119
  Transmission Date: 20170428
  Serious: Yes (Hospitalization)
  Sender: FDA-Public Use
  Company Number: US-ASTRAZENECA-2016SF19538

PATIENT
  Age: 69 Year
  Sex: Female
  Weight: 53.5 kg

DRUGS (6)
  1. PULMICORT FLEXHALER [Suspect]
     Active Substance: BUDESONIDE
     Indication: ASTHMA
     Dosage: OCCASIONALLY USES THE INHALER TWICE A DAY
     Route: 055
  2. PANTOPRAZOLE [Concomitant]
     Active Substance: PANTOPRAZOLE SODIUM
     Indication: DYSPEPSIA
     Route: 048
     Dates: start: 2015
  3. ADVIL [Concomitant]
     Active Substance: IBUPROFEN
     Indication: PAIN
     Dosage: AS REQUIRED
     Route: 048
  4. PULMICORT FLEXHALER [Suspect]
     Active Substance: BUDESONIDE
     Indication: ASTHMA
     Dosage: 180MCG INHALER, 120 DOSES, 1 PUFF, 1 TIME DAILY
     Route: 055
     Dates: start: 2006
  5. ALBUTEROL RESCUE INHALER [Concomitant]
     Indication: ASTHMA
     Dosage: AS REQUIRED
     Route: 055
  6. TYLENOL [Concomitant]
     Active Substance: ACETAMINOPHEN
     Indication: PAIN
     Dosage: AS REQUIRED
     Route: 048

REACTIONS (10)
  - Parkinson^s disease [Unknown]
  - Intentional product use issue [Unknown]
  - Asthma [Unknown]
  - Off label use [Unknown]
  - Device malfunction [Unknown]
  - Osteoporosis [Unknown]
  - Scoliosis [Unknown]
  - Cataract [Unknown]
  - Drug dose omission [Unknown]
  - Arthralgia [Unknown]

NARRATIVE: CASE EVENT DATE: 2013
